FAERS Safety Report 7511504-7 (Version None)
Quarter: 2011Q2

REPORT INFORMATION
  Report Type: 
  Country: None (occurrence: None)
  Receive Date: 20110531
  Receipt Date: 20110517
  Transmission Date: 20111010
  Serious: Yes (Other)
  Sender: FDA-Public Use
  Company Number: CA-JNJFOC-20101201411

PATIENT
  Sex: Female
  Weight: 73 kg

DRUGS (9)
  1. DIAMICRON [Concomitant]
  2. ASPIRIN [Concomitant]
  3. CALCIUM CARBONATE [Concomitant]
  4. RANITIDINE [Concomitant]
  5. AVALIDE [Concomitant]
  6. METHOTREXATE [Concomitant]
  7. REMICADE [Suspect]
     Indication: RHEUMATOID ARTHRITIS
     Route: 042
     Dates: start: 20100805
  8. METOPROLOL TARTRATE [Concomitant]
  9. METFFORMIN HYDROCHLORIDE [Concomitant]

REACTIONS (1)
  - TRANSIENT ISCHAEMIC ATTACK [None]
